FAERS Safety Report 25273447 (Version 6)
Quarter: 2025Q3

REPORT INFORMATION
  Report Type: Spontaneous
  Country: EU (occurrence: EU)
  Receive Date: 20250506
  Receipt Date: 20250805
  Transmission Date: 20251020
  Serious: No
  Sender: PFIZER
  Company Number: EU-PFIZER INC-PV202500051796

PATIENT
  Age: 10 Year
  Sex: Female
  Weight: 37.5 kg

DRUGS (1)
  1. GENOTROPIN [Suspect]
     Active Substance: SOMATROPIN
     Indication: Turner^s syndrome
     Dosage: 12 MG, WEEKLY/12 MG PEN
     Route: 058
     Dates: start: 202312

REACTIONS (4)
  - Drug dose omission by device [Unknown]
  - Device use error [Unknown]
  - Device breakage [Unknown]
  - Device material issue [Unknown]

NARRATIVE: CASE EVENT DATE: 20250427
